FAERS Safety Report 24018762 (Version 1)
Quarter: 2024Q2

REPORT INFORMATION
  Report Type: Spontaneous
  Country: MX (occurrence: MX)
  Receive Date: 20240627
  Receipt Date: 20240627
  Transmission Date: 20240716
  Serious: Yes (Other)
  Sender: FDA-Public Use
  Company Number: MX-BAXTER-2024BAX020244

PATIENT

DRUGS (7)
  1. PROPOFOL [Suspect]
     Active Substance: PROPOFOL
     Dosage: 380 MG AT AN UNSPECIFIED FREQUENCY
     Route: 065
  2. BUSCAPINA [Concomitant]
     Dosage: (COMPOUND BUSCAPINA)
     Route: 065
  3. TRIMEBUTINE [Concomitant]
     Active Substance: TRIMEBUTINE
     Route: 065
  4. SALPIFAR [Concomitant]
     Route: 065
  5. OMEPRAZOLE [Concomitant]
     Active Substance: OMEPRAZOLE
     Route: 065
  6. Salofalk [Concomitant]
     Route: 065
  7. METICORTEN [Concomitant]
     Active Substance: PREDNISONE
     Route: 065

REACTIONS (7)
  - Hypothermia [Unknown]
  - Tremor [Unknown]
  - Tachypnoea [Unknown]
  - Tachycardia [Unknown]
  - Pallor [Unknown]
  - Gastroenteritis [Unknown]
  - Vomiting [Unknown]

NARRATIVE: CASE EVENT DATE: 20240519
